FAERS Safety Report 8096716-9 (Version None)
Quarter: 2012Q1

REPORT INFORMATION
  Report Type: 
  Country: None (occurrence: None)
  Receive Date: 20120129
  Receipt Date: 20111116
  Transmission Date: 20120608
  Serious: No
  Sender: FDA-Public Use
  Company Number: US-ABBOTT-11P-163-0874709-00

PATIENT
  Sex: Male
  Weight: 78.542 kg

DRUGS (3)
  1. SULINDAC [Concomitant]
     Indication: ARTHRITIS
  2. PROTONIX [Concomitant]
     Indication: GASTROOESOPHAGEAL REFLUX DISEASE
  3. HUMIRA [Suspect]
     Indication: SPONDYLOARTHROPATHY
     Dates: start: 20110909

REACTIONS (3)
  - SPONDYLOARTHROPATHY [None]
  - ARTHRITIS [None]
  - OFF LABEL USE [None]
